FAERS Safety Report 14192022 (Version 1)
Quarter: 2017Q4

REPORT INFORMATION
  Report Type: Spontaneous
  Country: US (occurrence: US)
  Receive Date: 20171115
  Receipt Date: 20171115
  Transmission Date: 20180321
  Serious: No
  Sender: FDA-Public Use
  Company Number: US-PERRIGO-16US022425

PATIENT
  Age: 69 Year
  Sex: Female
  Weight: 64.4 kg

DRUGS (1)
  1. NICOTINE POLACRILEX [Suspect]
     Active Substance: NICOTINE
     Indication: SMOKING CESSATION THERAPY
     Dosage: 4 MG, EVERY 1 TO 2 HOURS
     Route: 002
     Dates: start: 20161118, end: 20161128

REACTIONS (4)
  - Anxiety [Recovered/Resolved]
  - Rash [Recovering/Resolving]
  - Dry skin [Recovering/Resolving]
  - Skin fissures [Recovered/Resolved]

NARRATIVE: CASE EVENT DATE: 201611
